FAERS Safety Report 7125019-1 (Version None)
Quarter: 2010Q4

REPORT INFORMATION
  Report Type: 
  Country: None (occurrence: None)
  Receive Date: 20101129
  Receipt Date: 20101115
  Transmission Date: 20110411
  Serious: Yes (Other)
  Sender: FDA-Public Use
  Company Number: FR-SANOFI-AVENTIS-2010SA009959

PATIENT
  Age: 82 Year
  Sex: Female

DRUGS (8)
  1. PLAVIX [Suspect]
     Indication: STENT PLACEMENT
     Route: 048
     Dates: start: 20100122, end: 20100201
  2. PLAVIX [Suspect]
     Route: 048
     Dates: start: 20100201
  3. PLAVIX [Suspect]
     Route: 048
     Dates: start: 20100901, end: 20101001
  4. KARDEGIC [Concomitant]
     Indication: ARRHYTHMIA
     Route: 048
  5. PREVISCAN [Concomitant]
     Indication: ARRHYTHMIA
  6. LASILIX [Concomitant]
  7. NEURONTIN [Concomitant]
  8. ACETAMINOPHEN W/ PROPOXYPHENE HCL [Concomitant]

REACTIONS (9)
  - ABASIA [None]
  - BACK PAIN [None]
  - CEREBROVASCULAR ACCIDENT [None]
  - CONVULSION [None]
  - FATIGUE [None]
  - HAEMOGLOBIN DECREASED [None]
  - INTERNATIONAL NORMALISED RATIO INCREASED [None]
  - OVERDOSE [None]
  - VASCULAR OCCLUSION [None]
